FAERS Safety Report 5037800-3 (Version None)
Quarter: 2006Q2

REPORT INFORMATION
  Report Type: 
  Country: None (occurrence: None)
  Receive Date: 20060602
  Receipt Date: 20060331
  Transmission Date: 20061013
  Serious: Yes (Other)
  Sender: FDA-Public Use
  Company Number: US200603006494

PATIENT
  Sex: Male

DRUGS (4)
  1. ALIMTA [Suspect]
  2. CYANOCOBALAMIN [Concomitant]
  3. CORTICOSTEROIDS [Concomitant]
  4. FOLIC ACID [Concomitant]

REACTIONS (1)
  - NEUTROPENIA [None]
